FAERS Safety Report 10612664 (Version 2)
Quarter: 2015Q1

REPORT INFORMATION
  Report Type: Report from Study
  Country: US (occurrence: US)
  Receive Date: 20141127
  Receipt Date: 20150109
  Transmission Date: 20150720
  Serious: Yes (Death, Hospitalization)
  Sender: FDA-Public Use
  Company Number: US-AMGEN-USASL2014091898

PATIENT
  Age: 81 Year
  Sex: Male
  Weight: 62.13 kg

DRUGS (1)
  1. PROLIA [Suspect]
     Active Substance: DENOSUMAB
     Indication: OSTEOPOROSIS
     Dosage: 60 MG, Q6MO
     Route: 058
     Dates: start: 20131212

REACTIONS (3)
  - Peritoneal haemorrhage [Fatal]
  - Splenic rupture [Fatal]
  - Hypoxia [Fatal]
